FAERS Safety Report 15758819 (Version 2)
Quarter: 2019Q1

REPORT INFORMATION
  Report Type: Report from Study
  Country: FR (occurrence: FR)
  Receive Date: 20181225
  Receipt Date: 20190115
  Transmission Date: 20190417
  Serious: Yes (Other)
  Sender: FDA-Public Use
  Company Number: PHHY2018FR192847

PATIENT
  Age: 37 Year
  Sex: Female
  Weight: 55 kg

DRUGS (4)
  1. BACTRIM [Suspect]
     Active Substance: SULFAMETHOXAZOLE\TRIMETHOPRIM
     Indication: ANTIFUNGAL PROPHYLAXIS
     Dosage: 400 OT, UNK
     Route: 065
     Dates: start: 20181202, end: 20181206
  2. PARACETAMOL [Suspect]
     Active Substance: ACETAMINOPHEN
     Indication: ANALGESIC THERAPY
     Dosage: 1 G, UNK
     Route: 065
     Dates: start: 20181205, end: 20181206
  3. ADOPORT [Suspect]
     Active Substance: TACROLIMUS
     Indication: RENAL TRANSPLANT
     Dosage: 14 MG, UNK
     Route: 058
     Dates: start: 20181130
  4. ROVALCYTE [Suspect]
     Active Substance: VALGANCICLOVIR HYDROCHLORIDE
     Indication: ANTIVIRAL PROPHYLAXIS
     Dosage: 450 OT, UNK
     Route: 065
     Dates: start: 20181202, end: 20181206

REACTIONS (1)
  - Hepatocellular injury [Recovering/Resolving]

NARRATIVE: CASE EVENT DATE: 20181206
